FAERS Safety Report 15424839 (Version 1)
Quarter: 2018Q4

REPORT INFORMATION
  Report Type: Report from Study
  Country: MX (occurrence: MX)
  Receive Date: 20180925
  Receipt Date: 20180925
  Transmission Date: 20190204
  Serious: Yes (Death, Other)
  Sender: FDA-Public Use
  Company Number: MX-JNJFOC-20180923687

PATIENT
  Sex: Female
  Weight: .86 kg

DRUGS (6)
  1. METICORTEN [Concomitant]
     Active Substance: PREDNISONE
     Route: 065
  2. METFORMIN [Concomitant]
     Active Substance: METFORMIN HYDROCHLORIDE
     Indication: GLUCOSE TOLERANCE IMPAIRED
     Route: 065
  3. INVOKANA DUO [Suspect]
     Active Substance: CANAGLIFLOZIN\METFORMIN HYDROCHLORIDE
     Indication: GLUCOSE TOLERANCE IMPAIRED
     Dosage: DOSE: 150/850 MG
     Route: 065
     Dates: end: 2018
  4. CIALIS [Concomitant]
     Active Substance: TADALAFIL
     Route: 065
  5. ASPIRIN. [Concomitant]
     Active Substance: ASPIRIN
     Route: 065
  6. LEVOTHYROXINE. [Concomitant]
     Active Substance: LEVOTHYROXINE
     Indication: HYPOTHYROIDISM
     Route: 065

REACTIONS (3)
  - Foetal exposure during pregnancy [Unknown]
  - Death [Fatal]
  - Premature baby [Unknown]

NARRATIVE: CASE EVENT DATE: 2018
